FAERS Safety Report 5075992-0 (Version None)
Quarter: 2006Q3

REPORT INFORMATION
  Report Type: 
  Country: None (occurrence: None)
  Receive Date: 20060714
  Receipt Date: 20060525
  Transmission Date: 20061208
  Serious: No
  Sender: FDA-Public Use
  Company Number: 2006SP002195

PATIENT
  Age: 82 Year
  Sex: Female
  Weight: 56.6996 kg

DRUGS (5)
  1. LUNESTA [Suspect]
     Indication: INSOMNIA
     Dosage: 2 MG;HS;ORAL
     Route: 048
     Dates: start: 20060518
  2. ATENOLOL [Concomitant]
  3. INDAPAMIDE [Concomitant]
  4. BENAZEPRIL HYDROCHLORIDE [Concomitant]
  5. EYE DROPS [Concomitant]

REACTIONS (1)
  - MIDDLE INSOMNIA [None]
